FAERS Safety Report 24701992 (Version 1)
Quarter: 2024Q4

REPORT INFORMATION
  Report Type: Spontaneous
  Country: US (occurrence: US)
  Receive Date: 20241205
  Receipt Date: 20241205
  Transmission Date: 20250114
  Serious: Yes (Other)
  Sender: HIKMA
  Company Number: US-MLMSERVICE-20241115-PI257824-00145-1

PATIENT
  Age: 30 Year
  Sex: Male

DRUGS (1)
  1. FENTANYL [Suspect]
     Active Substance: FENTANYL
     Indication: Product used for unknown indication
     Dosage: UNKNOWN
     Route: 042

REACTIONS (4)
  - Acute kidney injury [Recovering/Resolving]
  - C3 glomerulopathy [Recovering/Resolving]
  - Drug use disorder [Recovered/Resolved]
  - Drug abuser [Recovered/Resolved]
